FAERS Safety Report 5129059-3 (Version None)
Quarter: 2006Q4

REPORT INFORMATION
  Report Type: 
  Country: None (occurrence: None)
  Receive Date: 20061011
  Receipt Date: 20060927
  Transmission Date: 20070319
  Serious: Yes (Hospitalization)
  Sender: FDA-Public Use
  Company Number: 2006PV022051

PATIENT
  Sex: Male

DRUGS (1)
  1. BYETTA [Suspect]
     Indication: DRUG USE FOR UNKNOWN INDICATION
     Dosage: 5 MCG; BID; SC
     Route: 058
     Dates: start: 20060601

REACTIONS (6)
  - ANKLE FRACTURE [None]
  - DECREASED APPETITE [None]
  - FALL [None]
  - JOINT DISLOCATION [None]
  - NAUSEA [None]
  - WEIGHT DECREASED [None]
